FAERS Safety Report 20709892 (Version 3)
Quarter: 2023Q4

REPORT INFORMATION
  Report Type: Spontaneous
  Country: US (occurrence: US)
  Receive Date: 20220414
  Receipt Date: 20231208
  Transmission Date: 20240110
  Serious: No
  Sender: FDA-Public Use
  Company Number: US-PFIZER INC-202200418203

PATIENT
  Age: 55 Year
  Sex: Female

DRUGS (1)
  1. GENOTROPIN [Suspect]
     Active Substance: SOMATROPIN
     Indication: Blood growth hormone
     Dosage: 0.4 MG, DAILY

REACTIONS (6)
  - Device use error [Unknown]
  - Device breakage [Unknown]
  - Device occlusion [Unknown]
  - Device failure [Unknown]
  - Drug dose omission by device [Unknown]
  - Therapeutic response unexpected [Unknown]
